FAERS Safety Report 9630751 (Version 1)
Quarter: 2013Q4

REPORT INFORMATION
  Report Type: Spontaneous
  Country: US (occurrence: None)
  Receive Date: 20131016
  Receipt Date: 20131016
  Transmission Date: 20140711
  Serious: Yes (Hospitalization)
  Sender: FDA-Public Use
  Company Number: None

PATIENT
  Age: 52 Year
  Sex: Female
  Weight: 112.49 kg

DRUGS (26)
  1. EYLEA [Suspect]
     Indication: RETINAL VEIN OCCLUSION
     Dosage: 2MG  ONCE A MONTH  IVT
     Route: 042
     Dates: start: 20130702
  2. EYLEA [Suspect]
     Indication: MACULAR OEDEMA
     Dosage: 2MG  ONCE A MONTH  IVT
     Route: 042
     Dates: start: 20130702
  3. VITAMIN B-12 [Concomitant]
  4. VITAMIN C [Concomitant]
  5. WOMEN^S DAILY VITAMIN [Concomitant]
  6. HYDROCODONE-APAP (WATSON LABORATORIES) [Concomitant]
  7. MIRENA IUD [Concomitant]
  8. HUMILIN R [Concomitant]
  9. JANUVIA [Concomitant]
  10. LEVOTHYROXINE [Concomitant]
  11. MAGNESIUM [Concomitant]
  12. REGLAN [Concomitant]
  13. NITROLINGUAL PUMP SPRAY [Concomitant]
  14. OMEPRAZOLE [Concomitant]
  15. PROCHLORPERAZINE [Concomitant]
  16. TOPIRAMATE [Concomitant]
  17. TRAZODONE [Concomitant]
  18. AGGRENOX SA [Concomitant]
  19. ALBUTEOL/VENTOLIN [Concomitant]
  20. AMITRIPTYLINE [Concomitant]
  21. AMMONIUM LACTATE CREAM 12% [Concomitant]
  22. CALCIUM PLUS VITAMIN D (CON.) [Concomitant]
  23. CYCLOBENZAPRINE [Concomitant]
  24. CYMBALTA [Concomitant]
  25. FLUCONAZOLE [Concomitant]
  26. FUROSEMIDE [Concomitant]

REACTIONS (1)
  - Diastolic dysfunction [None]
